FAERS Safety Report 11155340 (Version 1)
Quarter: 2015Q2

REPORT INFORMATION
  Report Type: Spontaneous
  Country: None (occurrence: None)
  Receive Date: 20150601
  Receipt Date: 20150601
  Transmission Date: 20150821
  Serious: Yes (Life-Threatening, Hospitalization)
  Sender: FDA-Public Use
  Company Number: None

PATIENT
  Age: 66 Year
  Sex: Male
  Weight: 110 kg

DRUGS (16)
  1. DIPHENHYDRAMINE [Concomitant]
     Active Substance: DIPHENHYDRAMINE
  2. CISPLATIN. [Concomitant]
     Active Substance: CISPLATIN
  3. ENOXAPARIN [Concomitant]
     Active Substance: ENOXAPARIN
  4. ASPIRIN. [Concomitant]
     Active Substance: ASPIRIN
  5. ZETIA [Concomitant]
     Active Substance: EZETIMIBE
  6. NIACIN. [Concomitant]
     Active Substance: NIACIN
  7. CETUXIMAB [Suspect]
     Active Substance: CETUXIMAB
     Indication: PENILE CANCER
     Dosage: (400 MG/METERS SQUARD
     Route: 042
  8. LOSARTAN [Concomitant]
     Active Substance: LOSARTAN
  9. SIMVASTATIN. [Concomitant]
     Active Substance: SIMVASTATIN
  10. ALPRAZOLAM. [Concomitant]
     Active Substance: ALPRAZOLAM
  11. MESNA. [Concomitant]
     Active Substance: MESNA
  12. METFORMIN [Concomitant]
     Active Substance: METFORMIN HYDROCHLORIDE
  13. SPIRONOLACTONE. [Concomitant]
     Active Substance: SPIRONOLACTONE
  14. IFOSFAMIDE. [Concomitant]
     Active Substance: IFOSFAMIDE
  15. NEBIVOLOL [Concomitant]
     Active Substance: NEBIVOLOL
  16. PLAVIX [Concomitant]
     Active Substance: CLOPIDOGREL BISULFATE

REACTIONS (5)
  - Hyperhidrosis [None]
  - Tachycardia [None]
  - Unresponsive to stimuli [None]
  - Confusional state [None]
  - Hypotension [None]

NARRATIVE: CASE EVENT DATE: 20150421
